FAERS Safety Report 9030738 (Version 6)
Quarter: 2014Q2

REPORT INFORMATION
  Report Type: Report from Study
  Country: CA (occurrence: CA)
  Receive Date: 20130123
  Receipt Date: 20140604
  Transmission Date: 20141212
  Serious: Yes (Other)
  Sender: FDA-Public Use
  Company Number: CA-ROCHE-1172554

PATIENT
  Age: 67 Year
  Sex: Female
  Weight: 52.06 kg

DRUGS (10)
  1. OMALIZUMAB [Suspect]
     Indication: ASTHMA
     Route: 058
     Dates: start: 20060407
  2. OMALIZUMAB [Suspect]
     Route: 058
     Dates: start: 20060412
  3. OMALIZUMAB [Suspect]
     Route: 058
     Dates: start: 20090422
  4. OMALIZUMAB [Suspect]
     Route: 058
     Dates: start: 20091202
  5. OMALIZUMAB [Suspect]
     Route: 058
     Dates: start: 20100127
  6. OMALIZUMAB [Suspect]
     Route: 065
     Dates: start: 20130110
  7. OMALIZUMAB [Suspect]
     Route: 065
     Dates: start: 20131016
  8. ADVAIR [Concomitant]
     Indication: PRODUCT USED FOR UNKNOWN INDICATION
     Dosage: 500 UNK
     Route: 065
  9. ALVESCO [Concomitant]
     Indication: PRODUCT USED FOR UNKNOWN INDICATION
     Dosage: 200 UNK
     Route: 065
  10. CORTEF [Concomitant]

REACTIONS (22)
  - Blood pressure increased [Recovering/Resolving]
  - Asthma [Recovered/Resolved]
  - Skin cancer [Unknown]
  - Cough [Recovering/Resolving]
  - Dizziness [Unknown]
  - Bursitis [Unknown]
  - Somnolence [Unknown]
  - Back pain [Unknown]
  - Myalgia [Unknown]
  - Hearing impaired [Unknown]
  - Ear discomfort [Unknown]
  - Ear pain [Unknown]
  - Blood cortisol decreased [Unknown]
  - Respiratory tract congestion [Unknown]
  - Increased bronchial secretion [Unknown]
  - Stress [Unknown]
  - Influenza [Unknown]
  - Peripheral swelling [Unknown]
  - Dyspnoea [Unknown]
  - Increased upper airway secretion [Unknown]
  - Skin warm [Unknown]
  - Bronchitis [Recovering/Resolving]
